FAERS Safety Report 9098373 (Version 1)
Quarter: 2013Q1

REPORT INFORMATION
  Report Type: Report from Study
  Country: US (occurrence: US)
  Receive Date: 20130213
  Receipt Date: 20130213
  Transmission Date: 20140127
  Serious: Yes (Hospitalization)
  Sender: FDA-Public Use
  Company Number: PHHO2013US002394

PATIENT
  Age: 53 Year
  Sex: Female
  Weight: 60.2 kg

DRUGS (2)
  1. RECLAST [Suspect]
     Indication: OSTEOPOROSIS
     Dosage: 5MG/100ML 1X/YR
     Dates: start: 20100422
  2. BAPINEUZUMAB [Concomitant]
     Indication: DEMENTIA ALZHEIMER^S TYPE
     Dosage: UNK
     Dates: start: 20110302, end: 20110302

REACTIONS (1)
  - Visual impairment [Recovered/Resolved]
